FAERS Safety Report 7798977 (Version 4)
Quarter: 2013Q4

REPORT INFORMATION
  Report Type: Spontaneous
  Country: US (occurrence: US)
  Receive Date: 20110204
  Receipt Date: 20131029
  Transmission Date: 20140711
  Serious: Yes (Hospitalization, Other)
  Sender: FDA-Public Use
  Company Number: US-BAYER-2011-010912

PATIENT
  Age: 35 Year
  Sex: Female
  Weight: 154 kg

DRUGS (20)
  1. YAZ [Suspect]
     Indication: ACNE
     Dosage: UNK
     Route: 048
     Dates: start: 200205, end: 200304
  2. YAZ [Suspect]
     Indication: CONTRACEPTION
  3. YASMIN [Suspect]
     Indication: ACNE
     Dosage: UNK
     Route: 048
     Dates: start: 200205, end: 200304
  4. YASMIN [Suspect]
     Indication: CONTRACEPTION
  5. LIPITOR [Concomitant]
     Dosage: UNK
     Route: 048
     Dates: start: 1999
  6. LISINOPRIL [Concomitant]
     Indication: BLOOD PRESSURE ABNORMAL
     Dosage: UNK
     Route: 048
     Dates: start: 2006
  7. AUGMENTIN [Concomitant]
     Dosage: 875 MG, QD
     Route: 048
     Dates: start: 20070209, end: 20070223
  8. MEDROL [Concomitant]
     Dosage: 4 MG, UNK
     Route: 048
     Dates: start: 20070209, end: 20070216
  9. DICLOFENAC [Concomitant]
     Dosage: 75 MG, BID (TWICE DAILY)
     Route: 048
     Dates: start: 20070206, end: 20070226
  10. DIFLUCAN [Concomitant]
     Dosage: 150 MG, QD
     Dates: start: 20070301
  11. GYNE-LOTRIMIN [Concomitant]
     Dosage: 200 MG, UNK
     Dates: start: 20070714
  12. NEXIUM [Concomitant]
     Dosage: 40 MG, QD
     Route: 048
     Dates: start: 20070319
  13. PHENERGAN [Concomitant]
     Indication: NAUSEA
     Dosage: 15 MG, PRN (EVERY 6 HOURS AS NEEDED)
     Route: 048
     Dates: start: 20070319
  14. ZOCOR [Concomitant]
     Dosage: 40 MG, QD
     Route: 048
     Dates: start: 20070319
  15. PROTONIX [Concomitant]
     Dosage: 40 MG, UNK
     Route: 048
     Dates: start: 20070319
  16. COZAAR [Concomitant]
     Dosage: 50 MG, UNK
     Route: 048
     Dates: start: 20070319
  17. PROZAC [Concomitant]
     Dosage: 40 MG, QD
     Route: 048
     Dates: start: 20070502
  18. MULTIVITAMIN [Concomitant]
     Dosage: UNK
     Dates: start: 20070502
  19. SEASONALE [Concomitant]
  20. TYLENOL [Concomitant]
     Dosage: 1000 MG, UNK
     Dates: start: 20070523

REACTIONS (4)
  - Biliary dyskinesia [None]
  - Gallbladder disorder [None]
  - Pain [None]
  - Cholecystitis [None]
